FAERS Safety Report 26086498 (Version 1)
Quarter: 2025Q4

REPORT INFORMATION
  Report Type: Spontaneous
  Country: US (occurrence: US)
  Receive Date: 20251125
  Receipt Date: 20251125
  Transmission Date: 20260118
  Serious: Yes (Other)
  Sender: DAIICHI
  Company Number: US-DSJP-DS-2025-178313-US

PATIENT
  Sex: Female

DRUGS (1)
  1. DATROWAY [Suspect]
     Active Substance: DATOPOTAMAB DERUXTECAN-DLNK
     Indication: Breast cancer
     Dosage: UNK
     Route: 065

REACTIONS (2)
  - Infusion related reaction [Unknown]
  - Dyspnoea [Unknown]

NARRATIVE: CASE EVENT DATE: 20250101
